FAERS Safety Report 4419657-4 (Version None)
Quarter: 2004Q3

REPORT INFORMATION
  Report Type: 
  Country: None (occurrence: None)
  Receive Date: 20040809
  Receipt Date: 20040304
  Transmission Date: 20050211
  Serious: No
  Sender: FDA-Public Use
  Company Number: US-GLAXOSMITHKLINE-A0501180A

PATIENT
  Age: 50 Year
  Sex: Female

DRUGS (5)
  1. PAXIL [Suspect]
     Indication: GENERALISED ANXIETY DISORDER
     Dosage: 10MG SINGLE DOSE
     Route: 048
     Dates: start: 20040303
  2. EFFEXOR [Concomitant]
  3. LEXAPRO [Concomitant]
  4. BUSPAR [Concomitant]
  5. XANAX [Concomitant]

REACTIONS (5)
  - ABDOMINAL DISCOMFORT [None]
  - ABDOMINAL DISTENSION [None]
  - DRUG WITHDRAWAL SYNDROME [None]
  - INSOMNIA [None]
  - TREMOR [None]
